FAERS Safety Report 25196779 (Version 1)
Quarter: 2025Q2

REPORT INFORMATION
  Report Type: Spontaneous
  Country: SE (occurrence: SE)
  Receive Date: 20250415
  Receipt Date: 20250415
  Transmission Date: 20250717
  Serious: Yes (Other)
  Sender: TEVA
  Company Number: None

PATIENT
  Age: 72 Year
  Sex: Female

DRUGS (6)
  1. NAPROXEN [Suspect]
     Active Substance: NAPROXEN
     Indication: Product used for unknown indication
     Route: 065
     Dates: start: 202401, end: 20240111
  2. IBUPROFEN [Suspect]
     Active Substance: IBUPROFEN
     Indication: Back pain
     Route: 065
     Dates: start: 20240102
  3. UREA [Concomitant]
     Active Substance: UREA
     Indication: Product used for unknown indication
     Route: 065
  4. LOCOID [Concomitant]
     Active Substance: HYDROCORTISONE BUTYRATE
     Indication: Product used for unknown indication
     Route: 065
  5. AMLODIPINE [Suspect]
     Active Substance: AMLODIPINE BESYLATE
     Indication: Product used for unknown indication
     Route: 065
     Dates: start: 202401
  6. AMITRIPTYLINE [Suspect]
     Active Substance: AMITRIPTYLINE
     Indication: Back pain
     Route: 065
     Dates: start: 20240102, end: 20240111

REACTIONS (6)
  - Fatigue [Unknown]
  - Dry eye [Unknown]
  - Neoplasm skin [Unknown]
  - Dermatitis exfoliative generalised [Recovering/Resolving]
  - Eye pain [Unknown]
  - Eye discharge [Unknown]

NARRATIVE: CASE EVENT DATE: 20240101
